FAERS Safety Report 7398459-3 (Version None)
Quarter: 2011Q2

REPORT INFORMATION
  Report Type: 
  Country: None (occurrence: None)
  Receive Date: 20110407
  Receipt Date: 20110330
  Transmission Date: 20111010
  Serious: Yes (Other)
  Sender: FDA-Public Use
  Company Number: US-BIOGENIDEC-2009BI037661

PATIENT
  Age: 64 Year
  Sex: Female

DRUGS (2)
  1. AVONEX [Suspect]
     Indication: MULTIPLE SCLEROSIS
     Route: 030
     Dates: start: 20051104, end: 20090201
  2. AVONEX [Suspect]
     Route: 030
     Dates: end: 20110201

REACTIONS (3)
  - COLON CANCER STAGE 0 [None]
  - WHITE BLOOD CELL COUNT DECREASED [None]
  - BREAST CANCER [None]
